FAERS Safety Report 6283196-9 (Version None)
Quarter: 2009Q3

REPORT INFORMATION
  Report Type: 
  Country: None (occurrence: None)
  Receive Date: 20090724
  Receipt Date: 20090722
  Transmission Date: 20100115
  Serious: Yes (Other)
  Sender: FDA-Public Use
  Company Number: D0061878A

PATIENT
  Sex: Male

DRUGS (2)
  1. VIANI MITE [Suspect]
     Dosage: 600MCG TWICE PER DAY
     Route: 055
     Dates: start: 20050501, end: 20090301
  2. SINGULAIR [Concomitant]
     Route: 065

REACTIONS (4)
  - ABDOMINAL PAIN UPPER [None]
  - GASTROENTERITIS VIRAL [None]
  - ILL-DEFINED DISORDER [None]
  - VOMITING [None]
